FAERS Safety Report 16217830 (Version 1)
Quarter: 2019Q2

REPORT INFORMATION
  Report Type: Spontaneous
  Country: US (occurrence: US)
  Receive Date: 20190419
  Receipt Date: 20190419
  Transmission Date: 20190711
  Serious: No
  Sender: FDA-Public Use
  Company Number: US-SA-2019SA076893

PATIENT
  Age: 69 Year
  Sex: Female

DRUGS (2)
  1. ACT DRY MOUTH LOZENGES [Suspect]
     Active Substance: XYLITOL
     Indication: DRY MOUTH
     Dosage: UNK (7-10 PER NIGHT)
  2. ACT DRY MOUTH LOZENGES [Suspect]
     Active Substance: XYLITOL
     Dosage: 1 DF, QD

REACTIONS (6)
  - Dizziness [Recovering/Resolving]
  - Product use issue [Unknown]
  - Memory impairment [Recovering/Resolving]
  - Headache [Unknown]
  - Impaired driving ability [Unknown]
  - Drug ineffective [Unknown]
